FAERS Safety Report 5512312-9 (Version None)
Quarter: 2007Q4

REPORT INFORMATION
  Report Type: 
  Country: None (occurrence: None)
  Receive Date: 20071112
  Receipt Date: 20071017
  Transmission Date: 20080405
  Serious: No
  Sender: FDA-Public Use
  Company Number: A0688266A

PATIENT
  Age: 86 Year
  Sex: Female

DRUGS (5)
  1. VERAMYST [Suspect]
     Dosage: 1SPR PER DAY
     Route: 045
  2. PREDNISOLONE [Concomitant]
  3. AVAPRO [Concomitant]
  4. ALLEGRA [Concomitant]
  5. LASIX [Concomitant]

REACTIONS (1)
  - VISION BLURRED [None]
